FAERS Safety Report 6596412-0 (Version None)
Quarter: 2010Q1

REPORT INFORMATION
  Report Type: 
  Country: None (occurrence: None)
  Receive Date: 20100216
  Receipt Date: 20100202
  Transmission Date: 20100710
  Serious: Yes (Death, Other)
  Sender: FDA-Public Use
  Company Number: MC201000037

PATIENT

DRUGS (1)
  1. ANGIOMAX [Suspect]

REACTIONS (13)
  - ARTERIAL THROMBOSIS [None]
  - CARDIAC DEATH [None]
  - CEREBROVASCULAR ACCIDENT [None]
  - DYSPNOEA [None]
  - HAEMORRHAGE [None]
  - HAEMORRHAGE INTRACRANIAL [None]
  - HYPOTENSION [None]
  - HYPOVOLAEMIC SHOCK [None]
  - MYOCARDIAL INFARCTION [None]
  - MYOCARDIAL ISCHAEMIA [None]
  - PERICARDIAL HAEMORRHAGE [None]
  - THROMBOSIS IN DEVICE [None]
  - TRANSIENT ISCHAEMIC ATTACK [None]
